FAERS Safety Report 9760136 (Version 2)
Quarter: 2013Q4

REPORT INFORMATION
  Report Type: Spontaneous
  Country: US (occurrence: US)
  Receive Date: 20131216
  Receipt Date: 20131227
  Transmission Date: 20140711
  Serious: No
  Sender: FDA-Public Use
  Company Number: US-PFIZER INC-2013359537

PATIENT
  Age: 51 Year
  Sex: Male
  Weight: 78.91 kg

DRUGS (3)
  1. LYRICA [Suspect]
     Indication: NEURALGIA
     Dosage: UNK (75MG CAPSULE IN MORNING, 75MG CAPSULE IN AFTERNOON AND 150MG AT NIGHT), 3X/DAY
     Route: 048
     Dates: start: 20100610, end: 2013
  2. LYRICA [Suspect]
     Indication: BACK PAIN
  3. JANUMET [Concomitant]
     Indication: DIABETES MELLITUS
     Dosage: UNK

REACTIONS (6)
  - Gait disturbance [Unknown]
  - Mobility decreased [Unknown]
  - Depression [Unknown]
  - Frustration [Unknown]
  - Pain [Unknown]
  - Pain in extremity [Unknown]
